FAERS Safety Report 10760434 (Version 1)
Quarter: 2015Q1

REPORT INFORMATION
  Report Type: Report from Study
  Country: JP (occurrence: JP)
  Receive Date: 20150204
  Receipt Date: 20150204
  Transmission Date: 20150721
  Serious: Yes (Other)
  Sender: FDA-Public Use
  Company Number: JP-ROCHE-1529666

PATIENT

DRUGS (2)
  1. 5-FLUOROURACIL [Suspect]
     Active Substance: FLUOROURACIL
     Indication: BILE DUCT ADENOCARCINOMA
     Dosage: ON DAY 1-5 AND 8-12?4 WEEK CYCLE
     Route: 013
  2. PEGINTERFERON ALFA-2A [Suspect]
     Active Substance: PEGINTERFERON ALFA-2A
     Indication: BILE DUCT ADENOCARCINOMA
     Dosage: ON DAY 1, 8, 15 AND 22?4 WEEK CYCLE
     Route: 058

REACTIONS (2)
  - Leukopenia [Recovering/Resolving]
  - Anaemia [Unknown]
